FAERS Safety Report 17896898 (Version 1)
Quarter: 2020Q2

REPORT INFORMATION
  Report Type: Spontaneous
  Country: CA (occurrence: CA)
  Receive Date: 20200615
  Receipt Date: 20200615
  Transmission Date: 20200714
  Serious: Yes (Death, Other)
  Sender: FDA-Public Use
  Company Number: CA-PFIZER INC-2020231129

PATIENT
  Age: 43 Year
  Sex: Male

DRUGS (4)
  1. HYDROMORPHONE HYDROCHLORIDE. [Suspect]
     Active Substance: HYDROMORPHONE HYDROCHLORIDE
     Dosage: UNK
     Route: 065
  2. MORPHINE SULFATE. [Suspect]
     Active Substance: MORPHINE SULFATE
     Dosage: UNK
     Route: 065
  3. COCAINE [Suspect]
     Active Substance: COCAINE
     Dosage: UNK
     Route: 065
  4. AMFETAMINE [Suspect]
     Active Substance: AMPHETAMINE
     Dosage: UNK
     Route: 065

REACTIONS (10)
  - Drug abuse [Fatal]
  - Sudden death [Fatal]
  - Toxicity to various agents [Fatal]
  - Agitation [Fatal]
  - Substance-induced psychotic disorder [Fatal]
  - Delirium [Fatal]
  - Hyperhidrosis [Fatal]
  - Respiratory failure [Fatal]
  - Hallucination, visual [Fatal]
  - Paranoia [Fatal]
